FAERS Safety Report 17071142 (Version 1)
Quarter: 2019Q4

REPORT INFORMATION
  Report Type: Spontaneous
  Country: US (occurrence: US)
  Receive Date: 20191125
  Receipt Date: 20191125
  Transmission Date: 20200122
  Serious: No
  Sender: FDA-Public Use
  Company Number: US-009507513-1911USA007626

PATIENT
  Sex: Female

DRUGS (1)
  1. NEXPLANON [Suspect]
     Active Substance: ETONOGESTREL
     Indication: CONTRACEPTION
     Dosage: 1 IMPLANT(68 MG), FREQUENCY: ONE TIME
     Route: 059
     Dates: start: 201706, end: 20180612

REACTIONS (2)
  - Implant site hypoaesthesia [Unknown]
  - Implant site paraesthesia [Unknown]
